FAERS Safety Report 15312087 (Version 1)
Quarter: 2018Q3

REPORT INFORMATION
  Report Type: Spontaneous
  Country: BR (occurrence: BR)
  Receive Date: 20180823
  Receipt Date: 20180823
  Transmission Date: 20181010
  Serious: Yes (Other)
  Sender: FDA-Public Use
  Company Number: BR-009507513-1808BRA006444

PATIENT
  Sex: Female

DRUGS (1)
  1. IMPLANON [Suspect]
     Active Substance: ETONOGESTREL
     Dosage: 1 DF, UNK
     Route: 059
     Dates: start: 20180727

REACTIONS (3)
  - Complication of drug implant insertion [Unknown]
  - Complication associated with device [Unknown]
  - Purulent discharge [Unknown]

NARRATIVE: CASE EVENT DATE: 2018
